FAERS Safety Report 16246493 (Version 3)
Quarter: 2020Q2

REPORT INFORMATION
  Report Type: Spontaneous
  Country: US (occurrence: US)
  Receive Date: 20190427
  Receipt Date: 20200416
  Transmission Date: 20200713
  Serious: Yes (Hospitalization)
  Sender: FDA-Public Use
  Company Number: US-JNJFOC-20190420101

PATIENT
  Age: 65 Year
  Sex: Male

DRUGS (34)
  1. XARELTO [Suspect]
     Active Substance: RIVAROXABAN
     Indication: DEEP VEIN THROMBOSIS
  2. CETIRIZINE [Concomitant]
     Active Substance: CETIRIZINE HYDROCHLORIDE
     Route: 048
  3. ALBUTEROL                          /00139501/ [Concomitant]
     Active Substance: ALBUTEROL
     Indication: DYSPNOEA
     Dosage: INHALE 2 PUFFS BY MOUTH EVERY 6 HOURS AS NEEDED
     Route: 048
  4. ANASTROZOLE. [Concomitant]
     Active Substance: ANASTROZOLE
     Route: 048
  5. DOLUTEGRAVIR [Concomitant]
     Active Substance: DOLUTEGRAVIR
     Route: 048
  6. FLUCONAZOLE. [Concomitant]
     Active Substance: FLUCONAZOLE
     Dosage: TAKE 2 TABLETS BY MOUTH ON DAY 1 , THEN TAKE 1 TABLET ONE TIME A DAY UNTIL FINISHED.
     Route: 048
  7. POTASSIUM CHLORIDE. [Concomitant]
     Active Substance: POTASSIUM CHLORIDE
     Dosage: TAKE 1 TAB BY MOUTH TWICE A DAY
     Route: 048
  8. VALACYCLOVIR [Concomitant]
     Active Substance: VALACYCLOVIR HYDROCHLORIDE
     Route: 048
  9. VENLAFAXINE [Concomitant]
     Active Substance: VENLAFAXINE HYDROCHLORIDE
     Dosage: LAFAXINE XR 37.5MG
     Route: 048
  10. TYLENOL [Concomitant]
     Active Substance: ACETAMINOPHEN
     Dosage: TAKE 2 TABLETS BY MOUTH EVERY 4 HOURS AS NEEDED
     Route: 048
  11. BROMPHENIRAMINE [Concomitant]
     Active Substance: BROMPHENIRAMINE
     Indication: COUGH
     Dosage: BROMPHENIRAMINE-PSEUDOEPH DM 2-30-10 MG/5 ML SYRUP. TAKE 10 ML BY MOUTH EVERY 4 HRS AS NEEDED.
     Route: 048
  12. BUPROPION. [Concomitant]
     Active Substance: BUPROPION
     Dosage: TAKE 1 TABLET BY MOUTH TWICE A DAY
     Route: 048
  13. ERGOCALCIFEROL. [Concomitant]
     Active Substance: ERGOCALCIFEROL
     Dosage: 50,000 UNIT
     Route: 048
  14. KETOTIFEN [Concomitant]
     Active Substance: KETOTIFEN
     Dosage: KETOTIFEN 0.025 % (0.035 %) OPHTHALMIC SOLUTION PLACE 1 DROP IN BOTH EYES TWICE A DAY
     Route: 065
  15. DARUNAVIR ETHANOLATE. [Concomitant]
     Active Substance: DARUNAVIR ETHANOLATE
     Route: 048
  16. GOLYTELY [Concomitant]
     Active Substance: POLYETHYLENE GLYCOL 3350\POTASSIUM CHLORIDE\SODIUM BICARBONATE\SODIUM CHLORIDE\SODIUM SULFATE ANHYDROUS
     Dosage: POLYETHYLENE GLYCOL 236-22.74- 6.74 -5.86 GRAM (GOLYTELY) ORAL SOLUTION.
     Route: 048
  17. RITONAVIR. [Concomitant]
     Active Substance: RITONAVIR
     Route: 048
  18. TAMSULOSIN [Concomitant]
     Active Substance: TAMSULOSIN
     Route: 048
  19. XARELTO [Suspect]
     Active Substance: RIVAROXABAN
     Indication: FACTOR V LEIDEN MUTATION
     Route: 048
     Dates: start: 20170804, end: 20190105
  20. DESCOVY [Concomitant]
     Active Substance: EMTRICITABINE\TENOFOVIR ALAFENAMIDE FUMARATE
     Dosage: 200-25MG
     Route: 048
  21. SULINDAC. [Concomitant]
     Active Substance: SULINDAC
     Route: 048
  22. VENLAFAXINE [Concomitant]
     Active Substance: VENLAFAXINE HYDROCHLORIDE
     Dosage: VENLAFAXINE XR 75 MG CAPSULE
     Route: 048
  23. TESTOSTERONE CYPIONATE. [Concomitant]
     Active Substance: TESTOSTERONE CYPIONATE
     Dosage: TESTOSTERONE CYPIONATE 200 MG/ML IM INJECTION
     Route: 030
  24. ZALEPLON. [Concomitant]
     Active Substance: ZALEPLON
     Dosage: TAKE 1 CAPSULE BY MOUTH DAILY AT BEDTIME
     Route: 048
  25. XARELTO [Suspect]
     Active Substance: RIVAROXABAN
     Indication: VENA CAVA FILTER INSERTION
  26. AMLODIPINE [Concomitant]
     Active Substance: AMLODIPINE BESYLATE
     Route: 048
  27. ATORVASTATIN [Concomitant]
     Active Substance: ATORVASTATIN
     Route: 048
  28. AZITHROMYCIN ANHYDROUS. [Concomitant]
     Active Substance: AZITHROMYCIN ANHYDROUS
     Dosage: TAKE 2 TABLETS BY MOUTH ON DAY 1 , THEN TAKE 1 TABLET BY MOUTH DAILY ON DAYS 2 TO 5.
     Route: 048
  29. FINASTERIDE. [Concomitant]
     Active Substance: FINASTERIDE
     Route: 048
  30. KETOCONAZOLE. [Concomitant]
     Active Substance: KETOCONAZOLE
     Dosage: USE DAILY TO AFFECTED 120 ML AREA AS DIRECTED
     Route: 065
  31. LOSARTAN AND HYDROCHLOROTHIAZIDE [Concomitant]
     Active Substance: HYDROCHLOROTHIAZIDE\LOSARTAN POTASSIUM
     Dosage: 100-25MG
     Route: 048
  32. METFORMIN [Concomitant]
     Active Substance: METFORMIN HYDROCHLORIDE
     Route: 048
  33. MOMETASONE [Concomitant]
     Active Substance: MOMETASONE
     Dosage: MOMETASONE 50 MCG/ACTUATION NASAL SPRAY. USE 2 SPRAYS IN EACH NOSTRIL ONE TIME A DAY
     Route: 045
  34. PANTOPRAZOLE [Concomitant]
     Active Substance: PANTOPRAZOLE
     Dosage: EC 40MG
     Route: 048

REACTIONS (1)
  - Lower gastrointestinal haemorrhage [Recovering/Resolving]

NARRATIVE: CASE EVENT DATE: 20190105
